FAERS Safety Report 10064879 (Version 2)
Quarter: 2014Q2

REPORT INFORMATION
  Report Type: Spontaneous
  Country: US (occurrence: US)
  Receive Date: 20140408
  Receipt Date: 20140423
  Transmission Date: 20141212
  Serious: Yes (Death)
  Sender: FDA-Public Use
  Company Number: US-BAXTER-2014BAX016549

PATIENT
  Age: 71 Year
  Sex: Male

DRUGS (2)
  1. DIANEAL LOW CALCIUM [Suspect]
     Indication: PERITONEAL DIALYSIS
     Route: 033
     Dates: start: 200906, end: 20140326
  2. EXTRANEAL [Suspect]
     Indication: PERITONEAL DIALYSIS
     Route: 033
     Dates: start: 200906, end: 20140326

REACTIONS (11)
  - Therapy cessation [Fatal]
  - Multimorbidity [Fatal]
  - Renal failure chronic [Fatal]
  - Delirium [Recovering/Resolving]
  - Psychotic disorder [Recovering/Resolving]
  - Hallucination [Recovering/Resolving]
  - Urinary tract infection [Not Recovered/Not Resolved]
  - Injury [Unknown]
  - Unevaluable event [Unknown]
  - Drug hypersensitivity [Unknown]
  - Hypotension [Unknown]
